FAERS Safety Report 15839807 (Version 1)
Quarter: 2019Q1

REPORT INFORMATION
  Report Type: Spontaneous
  Country: US (occurrence: US)
  Receive Date: 20190117
  Receipt Date: 20190117
  Transmission Date: 20190417
  Serious: No
  Sender: FDA-Public Use
  Company Number: US-PFIZER INC-2019020625

PATIENT
  Sex: Female

DRUGS (5)
  1. UREA. [Suspect]
     Active Substance: UREA
     Indication: PSORIASIS
     Dosage: UNK
  2. CETIRIZINE [Suspect]
     Active Substance: CETIRIZINE HYDROCHLORIDE
     Indication: PSORIASIS
     Dosage: UNK
  3. HYDROXYZINE PAMOATE. [Suspect]
     Active Substance: HYDROXYZINE PAMOATE
     Indication: PSORIASIS
     Dosage: UNK
  4. SALICYLIC ACID. [Suspect]
     Active Substance: SALICYLIC ACID
     Indication: PSORIASIS
     Dosage: UNK
  5. CORTISONE [Suspect]
     Active Substance: CORTISONE\HYDROCORTISONE
     Indication: PSORIASIS
     Dosage: UNK

REACTIONS (1)
  - Drug ineffective for unapproved indication [Unknown]
